FAERS Safety Report 4665229-6 (Version None)
Quarter: 2005Q2

REPORT INFORMATION
  Report Type: 
  Country: None (occurrence: None)
  Receive Date: 20050518
  Receipt Date: 20041129
  Transmission Date: 20051028
  Serious: Yes (Life-Threatening, Hospitalization, Disabling, Other)
  Sender: FDA-Public Use
  Company Number: DE-MERCK-0411DEU00533

PATIENT
  Age: 64 Year
  Sex: Female
  Weight: 68 kg

DRUGS (7)
  1. VIOXX [Suspect]
     Route: 048
     Dates: start: 20010101, end: 20040601
  2. VIOXX [Suspect]
     Route: 048
     Dates: start: 20040901
  3. DICLOFENAC SODIUM [Suspect]
     Route: 048
  4. MAGNESIUM (UNSPECIFIED) [Concomitant]
     Route: 065
  5. VALDECOXIB [Suspect]
     Route: 065
  6. NEBIVOLOL HYDROCHLORIDE [Concomitant]
     Route: 065
  7. BUDESONIDE AND FORMOTEROL FUMARATE [Concomitant]
     Route: 055
     Dates: start: 20040607

REACTIONS (10)
  - ARRHYTHMIA [None]
  - BLOOD CHOLESTEROL INCREASED [None]
  - BLOOD PRESSURE INCREASED [None]
  - COAGULOPATHY [None]
  - DEEP VEIN THROMBOSIS [None]
  - LYMPHADENITIS [None]
  - MUSCLE SPASMS [None]
  - PULMONARY EMBOLISM [None]
  - SYNCOPE [None]
  - THROMBOSIS [None]
